FAERS Safety Report 7198030-2 (Version None)
Quarter: 2010Q4

REPORT INFORMATION
  Report Type: 
  Country: None (occurrence: None)
  Receive Date: 20101227
  Receipt Date: 20101216
  Transmission Date: 20110411
  Serious: Yes (Hospitalization)
  Sender: FDA-Public Use
  Company Number: US-JNJFOC-20101206780

PATIENT
  Sex: Male
  Weight: 44 kg

DRUGS (5)
  1. REMICADE [Suspect]
     Indication: CROHN'S DISEASE
     Route: 042
  2. REMICADE [Suspect]
     Route: 042
  3. PROBIOTICS [Concomitant]
  4. PREVACID [Concomitant]
  5. METHOTREXATE [Concomitant]

REACTIONS (2)
  - CROHN'S DISEASE [None]
  - ORCHITIS [None]
